FAERS Safety Report 4470276-3 (Version None)
Quarter: 2004Q4

REPORT INFORMATION
  Report Type: 
  Country: None (occurrence: None)
  Receive Date: 20041008
  Receipt Date: 20041001
  Transmission Date: 20050328
  Serious: Yes (Life-Threatening, Hospitalization, Disabling)
  Sender: FDA-Public Use
  Company Number: US-MERCK-0410USA00249

PATIENT
  Age: 44 Year
  Sex: Female

DRUGS (5)
  1. ASPIRIN [Concomitant]
     Route: 065
  2. METFORMIN [Concomitant]
     Route: 065
  3. TOPROL-XL [Concomitant]
     Route: 065
  4. PROTONIX [Concomitant]
     Route: 065
  5. VIOXX [Suspect]
     Indication: PAIN MANAGEMENT
     Route: 048
     Dates: start: 20030101

REACTIONS (1)
  - ARRHYTHMIA [None]
